FAERS Safety Report 5030350-X (Version None)
Quarter: 2006Q2

REPORT INFORMATION
  Report Type: 
  Country: None (occurrence: None)
  Receive Date: 20060614
  Receipt Date: 20060524
  Transmission Date: 20061013
  Serious: Yes (Hospitalization, Other)
  Sender: FDA-Public Use
  Company Number: USA0508105192

PATIENT
  Age: 54 Year
  Sex: Female
  Weight: 95.7 kg

DRUGS (4)
  1. CYMBALTA [Suspect]
     Indication: DEPRESSION
     Dosage: 90 + 150MG, DAILY (1/D), ORAL
     Route: 048
     Dates: start: 20050701
  2. CYMBALTA [Suspect]
     Indication: DEPRESSION
     Dosage: 90 + 150MG, DAILY (1/D), ORAL
     Route: 048
     Dates: start: 20060201
  3. AMBIEN [Concomitant]
  4. ATENOLOL [Concomitant]

REACTIONS (39)
  - ABDOMINAL PAIN [None]
  - AMMONIA INCREASED [None]
  - ANAEMIA [None]
  - ANTINUCLEAR ANTIBODY INCREASED [None]
  - ARTHRALGIA [None]
  - AUTOIMMUNE HEPATITIS [None]
  - BLOOD BILIRUBIN INCREASED [None]
  - DEPRESSED LEVEL OF CONSCIOUSNESS [None]
  - FATIGUE [None]
  - GAMMA-GLUTAMYLTRANSFERASE INCREASED [None]
  - HAEMOCHROMATOSIS [None]
  - HEPATIC FIBROSIS [None]
  - HEPATITIS [None]
  - HEPATITIS A ANTIBODY POSITIVE [None]
  - HYPOKALAEMIA [None]
  - HYPOTENSION [None]
  - IMMUNOSUPPRESSION [None]
  - INCORRECT DOSE ADMINISTERED [None]
  - INTENTIONAL OVERDOSE [None]
  - INTERNATIONAL NORMALISED RATIO INCREASED [None]
  - IRON DEFICIENCY [None]
  - JAUNDICE [None]
  - JEJUNAL ULCER [None]
  - JEJUNAL ULCER PERFORATION [None]
  - LETHARGY [None]
  - LIPASE INCREASED [None]
  - LIVER DISORDER [None]
  - MELAENA [None]
  - MENTAL STATUS CHANGES [None]
  - MYALGIA [None]
  - NIGHT SWEATS [None]
  - NORMOCHROMIC NORMOCYTIC ANAEMIA [None]
  - PANCREATITIS [None]
  - PYREXIA [None]
  - SERUM FERRITIN INCREASED [None]
  - TREATMENT NONCOMPLIANCE [None]
  - TREMOR [None]
  - WEIGHT DECREASED [None]
  - WEIGHT INCREASED [None]
